FAERS Safety Report 11135843 (Version 1)
Quarter: 2015Q2

REPORT INFORMATION
  Report Type: Spontaneous
  Country: US (occurrence: US)
  Receive Date: 20150526
  Receipt Date: 20150526
  Transmission Date: 20150821
  Serious: No
  Sender: FDA-Public Use
  Company Number: US-BAYER-2015-272407

PATIENT
  Age: 77 Year
  Sex: Female
  Weight: 56 kg

DRUGS (1)
  1. ALEVE [Suspect]
     Active Substance: NAPROXEN SODIUM
     Indication: ARTHRITIS
     Dosage: 2 DF, QD
     Route: 048

REACTIONS (3)
  - Product use issue [None]
  - Incorrect drug administration duration [None]
  - Incontinence [Not Recovered/Not Resolved]
